FAERS Safety Report 4429705-3 (Version None)
Quarter: 2004Q3

REPORT INFORMATION
  Report Type: 
  Country: None (occurrence: None)
  Receive Date: 20040816
  Receipt Date: 20040729
  Transmission Date: 20050211
  Serious: Yes (Life-Threatening, Hospitalization)
  Sender: FDA-Public Use
  Company Number: 208332

PATIENT
  Age: 49 Year
  Sex: Female

DRUGS (3)
  1. HERCEPTIN [Suspect]
     Indication: BREAST CANCER METASTATIC
     Dosage: 6 MG/KG, Q3W, INTRAVENOUS
     Route: 042
     Dates: start: 20040301, end: 20040701
  2. FASLODEX (FULVESTRANT) [Suspect]
     Dosage: INTRAMUSCULAR
     Route: 030
     Dates: start: 20040301, end: 20040701
  3. ZOMETA [Suspect]
     Dosage: 4 MG, Q3W
     Dates: start: 20040301, end: 20040701

REACTIONS (3)
  - COMA [None]
  - GASTRIC HAEMORRHAGE [None]
  - THROMBOCYTOPENIA [None]
